FAERS Safety Report 25461949 (Version 1)
Quarter: 2025Q2

REPORT INFORMATION
  Report Type: Report from Study
  Country: US (occurrence: US)
  Receive Date: 20250620
  Receipt Date: 20250620
  Transmission Date: 20250716
  Serious: Yes (Death, Hospitalization, Other)
  Sender: NOVARTIS
  Company Number: US-002147023-NVSC2025US098795

PATIENT
  Age: 42 Year
  Sex: Female

DRUGS (1)
  1. KISQALI [Suspect]
     Active Substance: RIBOCICLIB SUCCINATE
     Indication: Human epidermal growth factor receptor positive
     Dosage: 200 MG, QD
     Route: 048
     Dates: start: 20241127, end: 20250202

REACTIONS (4)
  - Pneumothorax [Fatal]
  - Cough [Fatal]
  - Peripheral swelling [Fatal]
  - Pleural effusion [Fatal]

NARRATIVE: CASE EVENT DATE: 20241127
